FAERS Safety Report 20499565 (Version 1)
Quarter: 2022Q1

REPORT INFORMATION
  Report Type: Report from Study
  Country: JP (occurrence: JP)
  Receive Date: 20220222
  Receipt Date: 20220222
  Transmission Date: 20220423
  Serious: Yes (Other)
  Sender: FDA-Public Use
  Company Number: JP-SUN PHARMACEUTICAL INDUSTRIES LTD-2022RR-327130

PATIENT
  Age: 70 Year

DRUGS (7)
  1. LANSOPRAZOLE [Suspect]
     Active Substance: LANSOPRAZOLE
     Indication: Ulcer
     Dosage: 15 MILLIGRAM, UNK
     Route: 065
  2. ASPIRIN [Suspect]
     Active Substance: ASPIRIN
     Indication: Ulcer
     Dosage: 100 MILLIGRAM, UNK
     Route: 065
  3. OMEPRAZOLE [Suspect]
     Active Substance: OMEPRAZOLE
     Indication: Ulcer
     Dosage: 40 MILLIGRAM, UNK
     Route: 042
  4. LOXOPROFEN SODIUM DIHYDRATE [Suspect]
     Active Substance: LOXOPROFEN SODIUM DIHYDRATE
     Indication: Ulcer
     Dosage: 60 MILLIGRAM, UNK
     Route: 065
  5. SODIUM ALGINATE [Suspect]
     Active Substance: SODIUM ALGINATE
     Indication: Ulcer
     Dosage: UNK
     Route: 065
  6. ALUMINUM HYDROXIDE [Suspect]
     Active Substance: ALUMINUM HYDROXIDE
     Indication: Ulcer
     Dosage: UNK
     Route: 065
  7. VONOPRAZAN FUMARATE [Suspect]
     Active Substance: VONOPRAZAN FUMARATE
     Indication: Ulcer
     Dosage: 20 MILLIGRAM, UNK
     Route: 065

REACTIONS (1)
  - Disease progression [Unknown]
